FAERS Safety Report 7504071-5 (Version None)
Quarter: 2011Q2

REPORT INFORMATION
  Report Type: 
  Country: None (occurrence: None)
  Receive Date: 20110525
  Receipt Date: 20110519
  Transmission Date: 20111010
  Serious: Yes (Other)
  Sender: FDA-Public Use
  Company Number: JP-JNJFOC-20110510015

PATIENT

DRUGS (7)
  1. ETOPOSIDE [Suspect]
     Indication: PERIPHERAL T-CELL LYMPHOMA UNSPECIFIED
     Dosage: 15-18, 43-46, 71-74
     Route: 042
  2. PREDNISONE [Suspect]
     Indication: PERIPHERAL T-CELL LYMPHOMA UNSPECIFIED
     Dosage: DAYS 1-14, 29-42 AND 57-70
     Route: 048
  3. BLEOMYCIN SULFATE [Suspect]
     Indication: PERIPHERAL T-CELL LYMPHOMA UNSPECIFIED
     Dosage: 8, 36 AND 64
     Route: 042
  4. CYCLOPHOSPHAMIDE [Suspect]
     Indication: PERIPHERAL T-CELL LYMPHOMA UNSPECIFIED
     Dosage: DAYS 1, 29 AND 57
     Route: 042
  5. DOXORUBICIN HYDROCHLORIDE [Suspect]
     Indication: PERIPHERAL T-CELL LYMPHOMA UNSPECIFIED
     Dosage: DAYS 1, 15, 29, 43, 57 AND 71
     Route: 042
  6. VINCRISTINE [Suspect]
     Indication: PERIPHERAL T-CELL LYMPHOMA UNSPECIFIED
     Dosage: DAYS 8, 22, 36, 50, 64 AND 78
     Route: 042
  7. GRANULOCYTE COLONY STIMULATING FACTOR [Concomitant]
     Route: 065

REACTIONS (1)
  - ASPARTATE AMINOTRANSFERASE INCREASED [None]
